FAERS Safety Report 4540827-9 (Version None)
Quarter: 2004Q4

REPORT INFORMATION
  Report Type: 
  Country: None (occurrence: None)
  Receive Date: 20041229
  Receipt Date: 20041227
  Transmission Date: 20050328
  Serious: Yes (Life-Threatening, Hospitalization)
  Sender: FDA-Public Use
  Company Number: FR-MERCK-0412FRA00079

PATIENT
  Age: 62 Year
  Sex: Female
  Weight: 82 kg

DRUGS (5)
  1. HYZAAR [Suspect]
     Indication: HYPERTENSION
     Route: 048
  2. CELIPROLOL HYDROCHLORIDE [Suspect]
     Indication: HYPERTENSION
     Route: 048
  3. RISPERIDONE [Suspect]
     Indication: PSYCHOTIC DISORDER
     Route: 048
     Dates: start: 20020101
  4. RISPERIDONE [Suspect]
     Route: 048
     Dates: start: 20021130
  5. TRIMEPRAZINE TARTRATE [Suspect]
     Indication: PSYCHOTIC DISORDER
     Route: 048

REACTIONS (1)
  - DIABETIC HYPEROSMOLAR COMA [None]
